FAERS Safety Report 7329464-0 (Version None)
Quarter: 2011Q1

REPORT INFORMATION
  Report Type: 
  Country: None (occurrence: None)
  Receive Date: 20110223
  Receipt Date: 20110211
  Transmission Date: 20110831
  Serious: Yes (Hospitalization)
  Sender: FDA-Public Use
  Company Number: 831486

PATIENT
  Age: 73 Year
  Sex: Female
  Weight: 54 kg

DRUGS (7)
  1. SOLU-MEDROL [Concomitant]
  2. ZOPHREN [Concomitant]
  3. TAXOL [Concomitant]
  4. ZANTAC [Concomitant]
  5. CARBOPLATIN [Suspect]
     Indication: PRODUCT USED FOR UNKNOWN INDICATION
     Dosage: 172 MG MILLIGRAM(S), INTRAVENOUS DRIP
     Route: 041
     Dates: start: 20110210, end: 20110210
  6. POLARAMINE [Concomitant]
  7. AVASTIN [Concomitant]

REACTIONS (4)
  - HYPERSENSITIVITY [None]
  - OXYGEN SATURATION DECREASED [None]
  - HYPERHIDROSIS [None]
  - INFUSION RELATED REACTION [None]
